FAERS Safety Report 4924541-3 (Version None)
Quarter: 2006Q1

REPORT INFORMATION
  Report Type: 
  Country: None (occurrence: None)
  Receive Date: 20060222
  Receipt Date: 20060205
  Transmission Date: 20060701
  Serious: Yes (Other)
  Sender: FDA-Public Use
  Company Number: A-JP2006-11594

PATIENT
  Age: 4 Month
  Sex: Female

DRUGS (5)
  1. TRACLEER [Suspect]
     Indication: PULMONARY HYPERTENSION
  2. NITROUS OXIDE W/ OXYGEN [Concomitant]
  3. OXYGEN (OXYGEN) [Concomitant]
  4. DOPAMINE HCL [Concomitant]
  5. SILDENAFIL CITRATE [Concomitant]

REACTIONS (2)
  - ALANINE AMINOTRANSFERASE INCREASED [None]
  - ASPARTATE AMINOTRANSFERASE INCREASED [None]
